FAERS Safety Report 18050078 (Version 2)
Quarter: 2021Q1

REPORT INFORMATION
  Report Type: Spontaneous
  Country: US (occurrence: US)
  Receive Date: 20200721
  Receipt Date: 20210305
  Transmission Date: 20210419
  Serious: Yes (Other)
  Sender: FDA-Public Use
  Company Number: US-JNJFOC-20200726676

PATIENT
  Sex: Male

DRUGS (4)
  1. RISPERDAL [Suspect]
     Active Substance: RISPERIDONE
     Indication: BEHAVIOUR DISORDER
     Route: 048
     Dates: start: 2011, end: 2014
  2. ZONEGRAN [Suspect]
     Active Substance: ZONISAMIDE
     Indication: BEHAVIOUR DISORDER
     Route: 065
  3. ZONEGRAN [Suspect]
     Active Substance: ZONISAMIDE
     Route: 065
  4. ZONEGRAN [Suspect]
     Active Substance: ZONISAMIDE
     Route: 065

REACTIONS (3)
  - Emotional disorder [Unknown]
  - Hallucination [Unknown]
  - Gynaecomastia [Unknown]
